FAERS Safety Report 18460647 (Version 1)
Quarter: 2020Q4

REPORT INFORMATION
  Report Type: Report from Study
  Country: None (occurrence: US)
  Receive Date: 20201103
  Receipt Date: 20201103
  Transmission Date: 20210114
  Serious: Yes (Other)
  Sender: FDA-Public Use
  Company Number: US-ABBVIE-20K-163-3629444-00

PATIENT
  Age: 66 Year
  Sex: Male

DRUGS (3)
  1. LEVOTHYROXINE. [Concomitant]
     Active Substance: LEVOTHYROXINE
     Indication: PRODUCT USED FOR UNKNOWN INDICATION
     Dates: start: 2020
  2. XTANDI [Suspect]
     Active Substance: ENZALUTAMIDE
     Indication: PROSTATE CANCER
     Dosage: ONCE DAILY
     Route: 048
     Dates: start: 201905
  3. LUPRON [Suspect]
     Active Substance: LEUPROLIDE ACETATE
     Indication: PRODUCT USED FOR UNKNOWN INDICATION
     Route: 065

REACTIONS (5)
  - Weight increased [Recovered/Resolved]
  - Foot fracture [Unknown]
  - Fatigue [Unknown]
  - Temperature intolerance [Unknown]
  - Humidity intolerance [Unknown]

NARRATIVE: CASE EVENT DATE: 201912
